FAERS Safety Report 7345125-6 (Version None)
Quarter: 2011Q1

REPORT INFORMATION
  Report Type: 
  Country: None (occurrence: None)
  Receive Date: 20110310
  Receipt Date: 20110303
  Transmission Date: 20110831
  Serious: Yes (Other)
  Sender: FDA-Public Use
  Company Number: US-ELI_LILLY_AND_COMPANY-US201103001723

PATIENT
  Sex: Male

DRUGS (3)
  1. HUMULIN 70/30 [Suspect]
     Dosage: 28 U, 2/D
     Dates: start: 19950101
  2. MULTIVITAMIN [Concomitant]
  3. HUMULIN 70/30 [Suspect]
     Indication: TYPE 2 DIABETES MELLITUS
     Dosage: 28 U, 2/D
     Dates: start: 19950101

REACTIONS (2)
  - HYPERTENSION [None]
  - DRUG INEFFECTIVE [None]
